FAERS Safety Report 15943361 (Version 2)
Quarter: 2019Q4

REPORT INFORMATION
  Report Type: Report from Study
  Country: FR (occurrence: FR)
  Receive Date: 20190210
  Receipt Date: 20191001
  Transmission Date: 20200122
  Serious: Yes (Other)
  Sender: FDA-Public Use
  Company Number: PHHY2016FR143696

PATIENT
  Age: 41 Year
  Sex: Male
  Weight: 76 kg

DRUGS (1)
  1. AFINITOR [Suspect]
     Active Substance: EVEROLIMUS
     Indication: NEUROENDOCRINE TUMOUR
     Dosage: 10 MG, QD
     Route: 065
     Dates: start: 20140221

REACTIONS (6)
  - Aphthous ulcer [Recovered/Resolved]
  - Hypertriglyceridaemia [Recovered/Resolved]
  - Asthenia [Recovered/Resolved]
  - Cerebral atrophy [Unknown]
  - Memory impairment [Recovered/Resolved]
  - Diarrhoea [Recovered/Resolved]

NARRATIVE: CASE EVENT DATE: 20140221
